FAERS Safety Report 9808945 (Version 1)
Quarter: 2014Q1

REPORT INFORMATION
  Report Type: Spontaneous
  Country: US (occurrence: US)
  Receive Date: 20140110
  Receipt Date: 20140110
  Transmission Date: 20141002
  Serious: Yes (Death)
  Sender: FDA-Public Use
  Company Number: US-PFIZER INC-2014004756

PATIENT
  Age: 20 Year
  Sex: Male

DRUGS (8)
  1. OXYCODONE HYDROCHLORIDE [Suspect]
     Dosage: UNK
  2. MORPHINE SULFATE [Suspect]
     Dosage: UNK
  3. METHADONE [Suspect]
     Dosage: UNK
  4. CLONAZEPAM [Suspect]
     Dosage: UNK
  5. COCAINE [Suspect]
     Dosage: UNK
  6. CITALOPRAM [Suspect]
     Dosage: UNK
  7. DIPHENHYDRAMINE [Suspect]
     Dosage: UNK
  8. ACETAMINOPHEN [Suspect]
     Dosage: UNK

REACTIONS (1)
  - Drug abuse [Fatal]
